FAERS Safety Report 19382078 (Version 1)
Quarter: 2021Q2

REPORT INFORMATION
  Report Type: Spontaneous
  Country: US (occurrence: US)
  Receive Date: 20210607
  Receipt Date: 20210607
  Transmission Date: 20210717
  Serious: No
  Sender: FDA-Public Use
  Company Number: US-AZURITY PHARMACEUTICALS, INC.-2020SIL00046

PATIENT
  Sex: Female

DRUGS (1)
  1. XATMEP [Suspect]
     Active Substance: METHOTREXATE
     Dosage: UNK UNK, 1X/WEEK

REACTIONS (1)
  - Vomiting [Unknown]
